FAERS Safety Report 7568322-3 (Version None)
Quarter: 2011Q2

REPORT INFORMATION
  Report Type: 
  Country: None (occurrence: None)
  Receive Date: 20110623
  Receipt Date: 20110616
  Transmission Date: 20111010
  Serious: Yes (Death, Other)
  Sender: FDA-Public Use
  Company Number: A0799994A

PATIENT

DRUGS (5)
  1. INTERFERON [Concomitant]
  2. NORVIR [Concomitant]
  3. TRUVADA [Concomitant]
  4. PROMACTA [Suspect]
     Indication: IDIOPATHIC THROMBOCYTOPENIC PURPURA
     Dosage: 50MG PER DAY
     Route: 048
     Dates: start: 20090210
  5. INVIRASE [Concomitant]

REACTIONS (3)
  - LIVER FUNCTION TEST ABNORMAL [None]
  - DEATH [None]
  - ASPARTATE AMINOTRANSFERASE INCREASED [None]
